FAERS Safety Report 7125150-0 (Version None)
Quarter: 2010Q4

REPORT INFORMATION
  Report Type: 
  Country: None (occurrence: None)
  Receive Date: 20101115
  Receipt Date: 20101105
  Transmission Date: 20110411
  Serious: Yes (Other)
  Sender: FDA-Public Use
  Company Number: 2010SP055184

PATIENT
  Sex: Female

DRUGS (6)
  1. PEG-INTRON [Suspect]
     Indication: HEPATITIS
     Dosage: SC
     Route: 058
     Dates: start: 20100813, end: 20100930
  2. RIBASPHERE [Suspect]
     Indication: HEPATITIS
     Dosage: 200 MG; BID; PO
     Route: 048
     Dates: start: 20100813, end: 20100930
  3. ARANESP [Concomitant]
  4. K-DUR [Concomitant]
  5. FE [Concomitant]
  6. ALLOPURINOL [Concomitant]

REACTIONS (3)
  - ANAEMIA [None]
  - HYPOKALAEMIA [None]
  - LACTIC ACIDOSIS [None]
